FAERS Safety Report 4445515-5 (Version None)
Quarter: 2004Q3

REPORT INFORMATION
  Report Type: 
  Country: None (occurrence: None)
  Receive Date: 20040804
  Receipt Date: 20040220
  Transmission Date: 20050211
  Serious: Yes (Hospitalization)
  Sender: FDA-Public Use
  Company Number: 2004-113174-NL

PATIENT
  Age: 33 Year
  Sex: Male
  Weight: 113 kg

DRUGS (5)
  1. REMERON [Suspect]
     Dosage: 30 MG DAILY ORAL
     Route: 048
     Dates: end: 20040201
  2. DIOVANE [Concomitant]
  3. ALLEGRA [Concomitant]
  4. ALBUTEROL [Concomitant]
  5. PAXIL [Concomitant]

REACTIONS (2)
  - OEDEMA [None]
  - ORTHOSTATIC HYPOTENSION [None]
